FAERS Safety Report 11678859 (Version 1)
Quarter: 2015Q4

REPORT INFORMATION
  Report Type: Spontaneous
  Country: IR (occurrence: IR)
  Receive Date: 20151028
  Receipt Date: 20151028
  Transmission Date: 20160304
  Serious: Yes (Hospitalization)
  Sender: FDA-Public Use
  Company Number: IR-IMPAX LABORATORIES, INC-2015-IPXL-01048

PATIENT
  Age: 28 Year
  Sex: Male

DRUGS (1)
  1. DIVALPROEX SODIUM ER [Suspect]
     Active Substance: DIVALPROEX SODIUM
     Indication: POISONING DELIBERATE
     Dosage: 18 G, UNK
     Route: 065

REACTIONS (6)
  - Toxicity to various agents [Unknown]
  - Liver function test abnormal [Unknown]
  - Poisoning deliberate [Unknown]
  - Acidosis [Unknown]
  - Coma [Unknown]
  - Intentional overdose [Unknown]
